FAERS Safety Report 7184348-6 (Version None)
Quarter: 2010Q4

REPORT INFORMATION
  Report Type: 
  Country: None (occurrence: None)
  Receive Date: 20101222
  Receipt Date: 20100416
  Transmission Date: 20110411
  Serious: No
  Sender: FDA-Public Use
  Company Number: US-PFIZER INC-2010049021

PATIENT
  Sex: Female

DRUGS (2)
  1. DIFLUCAN [Suspect]
     Dosage: UNK
  2. LEVONORGESTREL [Suspect]
     Dosage: 0.75 MG, UNK
     Route: 048

REACTIONS (1)
  - METRORRHAGIA [None]
